FAERS Safety Report 4930544-5 (Version None)
Quarter: 2006Q1

REPORT INFORMATION
  Report Type: 
  Country: None (occurrence: None)
  Receive Date: 20060302
  Receipt Date: 20050822
  Transmission Date: 20060701
  Serious: Yes (Hospitalization)
  Sender: FDA-Public Use
  Company Number: US-MERCK-0508USA03647

PATIENT
  Age: 62 Year
  Sex: Female
  Weight: 91 kg

DRUGS (9)
  1. VIOXX [Suspect]
     Indication: ARTHRALGIA
     Route: 048
     Dates: start: 20001101
  2. LIPITOR [Concomitant]
     Route: 065
  3. ULTRAM [Concomitant]
     Route: 065
  4. REMERON [Concomitant]
     Route: 065
  5. ARTHROTEC [Concomitant]
     Route: 065
  6. HYDROCODONE HYDROCHLORIDE [Concomitant]
     Route: 065
  7. ASPIRIN [Concomitant]
     Route: 065
  8. LEVAQUIN [Concomitant]
     Route: 065
  9. EVISTA [Concomitant]
     Route: 065

REACTIONS (19)
  - ARTHROPATHY [None]
  - ASTHENIA [None]
  - BLOOD PRESSURE INCREASED [None]
  - BRONCHITIS [None]
  - CEREBROVASCULAR ACCIDENT [None]
  - CHEST PAIN [None]
  - DEPRESSION [None]
  - DYSPNOEA [None]
  - DYSPNOEA EXERTIONAL [None]
  - EMPHYSEMA [None]
  - FATIGUE [None]
  - FUNCTIONAL RESIDUAL CAPACITY DECREASED [None]
  - MAJOR DEPRESSION [None]
  - MENISCUS LESION [None]
  - OEDEMA PERIPHERAL [None]
  - PALPITATIONS [None]
  - SCOLIOSIS [None]
  - STRESS INCONTINENCE [None]
  - TRANSIENT ISCHAEMIC ATTACK [None]
